FAERS Safety Report 10539897 (Version 2)
Quarter: 2014Q4

REPORT INFORMATION
  Report Type: Report from Study
  Country: JP (occurrence: JP)
  Receive Date: 20141024
  Receipt Date: 20141117
  Transmission Date: 20150529
  Serious: Yes (Hospitalization)
  Sender: FDA-Public Use
  Company Number: JP-BRISTOL-MYERS SQUIBB COMPANY-21513262

PATIENT
  Age: 83 Year
  Sex: Female
  Weight: 40 kg

DRUGS (6)
  1. HYPEN [Concomitant]
     Active Substance: ETODOLAC
  2. TEPRENONE [Concomitant]
     Active Substance: TEPRENONE
  3. PREDONINE [Concomitant]
     Active Substance: PREDNISOLONE\PREDNISOLONE ACETATE\PREDNISOLONE SODIUM SUCCINATE
     Dosage: 5MG/DAY FROM 24-OCT-2012
  4. ORENCIA [Suspect]
     Active Substance: ABATACEPT
     Indication: RHEUMATOID ARTHRITIS
     Dosage: 18-DEC-2012, 750MG
     Route: 042
     Dates: start: 20121024
  5. MOHRUS [Concomitant]
     Active Substance: KETOPROFEN
  6. DEPAS [Concomitant]
     Active Substance: ETIZOLAM

REACTIONS (2)
  - Cataract [Recovered/Resolved]
  - Drug ineffective [Unknown]

NARRATIVE: CASE EVENT DATE: 20121107
